FAERS Safety Report 5259640-2 (Version None)
Quarter: 2007Q1

REPORT INFORMATION
  Report Type: 
  Country: None (occurrence: None)
  Receive Date: 20070307
  Receipt Date: 20070307
  Transmission Date: 20070707
  Serious: Yes (Hospitalization)
  Sender: FDA-Public Use
  Company Number: None

PATIENT
  Sex: Male
  Weight: 113.3993 kg

DRUGS (1)
  1. FACTIVE [Suspect]
     Indication: EAR INFECTION
     Dosage: 5 DAY  ONCE A DAY  PO  ONE DOSE
     Route: 048
     Dates: start: 20070228, end: 20070228

REACTIONS (11)
  - ASTHENIA [None]
  - BLISTER [None]
  - CHILLS [None]
  - DISORIENTATION [None]
  - DYSPNOEA [None]
  - ERYTHEMA [None]
  - HYPOAESTHESIA [None]
  - HYPOAESTHESIA ORAL [None]
  - PRURITUS [None]
  - VISUAL DISTURBANCE [None]
  - VOMITING [None]
